FAERS Safety Report 6104983-3 (Version None)
Quarter: 2009Q1

REPORT INFORMATION
  Report Type: 
  Country: None (occurrence: None)
  Receive Date: 20090303
  Receipt Date: 20090212
  Transmission Date: 20090719
  Serious: Yes (Death)
  Sender: FDA-Public Use
  Company Number: 1000004889

PATIENT
  Age: 52 Year
  Sex: Female

DRUGS (5)
  1. DILTIAZEM [Suspect]
  2. ACETAMINOPHEN AND TRAMADOL HCL [Suspect]
  3. CLONAZEPAM [Suspect]
  4. FLUOXETINE [Suspect]
  5. FUROSEMIDE [Suspect]

REACTIONS (4)
  - CARDIAC ARREST [None]
  - COMPLETED SUICIDE [None]
  - MULTIPLE DRUG OVERDOSE [None]
  - RESPIRATORY ARREST [None]
